FAERS Safety Report 25434266 (Version 1)
Quarter: 2025Q2

REPORT INFORMATION
  Report Type: Spontaneous
  Country: CN (occurrence: CN)
  Receive Date: 20250613
  Receipt Date: 20250613
  Transmission Date: 20250717
  Serious: Yes (Life-Threatening, Other)
  Sender: BAYER HEALTHCARE PHARMACEUTICALS INC.
  Company Number: CN-BAYER-2025A077392

PATIENT
  Age: 29 Year
  Sex: Male
  Weight: 73 kg

DRUGS (1)
  1. ULTRAVIST [Suspect]
     Active Substance: IOPROMIDE
     Indication: Angiocardiogram
     Route: 041
     Dates: start: 20250608, end: 20250608

REACTIONS (7)
  - Anaphylactic shock [Recovering/Resolving]
  - Amaurosis [Recovering/Resolving]
  - Heart rate decreased [Recovered/Resolved]
  - Blood pressure immeasurable [Recovered/Resolved]
  - Rash [Recovering/Resolving]
  - Generalised oedema [Recovering/Resolving]
  - Dizziness [Recovering/Resolving]

NARRATIVE: CASE EVENT DATE: 20250608
